FAERS Safety Report 13698634 (Version 1)
Quarter: 2017Q2

REPORT INFORMATION
  Report Type: Spontaneous
  Country: US (occurrence: US)
  Receive Date: 20170627
  Receipt Date: 20170627
  Transmission Date: 20170830
  Serious: Yes (Disabling)
  Sender: FDA-Public Use
  Company Number: None

PATIENT
  Age: 47 Year
  Sex: Male
  Weight: 82.8 kg

DRUGS (8)
  1. LISIONOPRIL 10MG [Suspect]
     Active Substance: LISINOPRIL
     Indication: BLOOD PRESSURE MEASUREMENT
     Dosage: ?          OTHER STRENGTH:MG;QUANTITY:90 TABLET(S);?
     Route: 048
     Dates: start: 20170201, end: 20170624
  2. VALTREX [Concomitant]
     Active Substance: VALACYCLOVIR HYDROCHLORIDE
  3. PATANESE NASAL SPRAY [Concomitant]
  4. TURMERIC [Concomitant]
     Active Substance: HERBALS\TURMERIC
  5. VITAMIN C [Concomitant]
     Active Substance: ASCORBIC ACID
  6. SINGULAIR [Concomitant]
     Active Substance: MONTELUKAST SODIUM
  7. VITAMIN B12 [Concomitant]
     Active Substance: CYANOCOBALAMIN
  8. MOTRIN [Concomitant]
     Active Substance: IBUPROFEN

REACTIONS (7)
  - Cough [None]
  - Hypoaesthesia [None]
  - Respiratory distress [None]
  - Confusional state [None]
  - Hyperhidrosis [None]
  - Nasal congestion [None]
  - Dizziness [None]

NARRATIVE: CASE EVENT DATE: 20170522
